FAERS Safety Report 5216579-6 (Version None)
Quarter: 2007Q1

REPORT INFORMATION
  Report Type: 
  Country: None (occurrence: None)
  Receive Date: 20061130
  Receipt Date: 20060814
  Transmission Date: 20070707
  Serious: Yes (Hospitalization, Other)
  Sender: FDA-Public Use
  Company Number: US200608002904

PATIENT
  Sex: Female
  Weight: 83.4 kg

DRUGS (9)
  1. ZYPREXA [Suspect]
     Indication: DEPRESSION
     Dosage: 10 MG
     Dates: start: 19991229, end: 20001001
  2. ZOLOFT [Concomitant]
  3. METFORMIN HCL [Concomitant]
  4. TENORMIN /NEZ/ (ATENOLOL) [Concomitant]
  5. METOPROLOL TARTRATE [Concomitant]
  6. ORAL CONTRACEPTIVE NOS (ORAL CONTRACEPTIVE NOS) [Concomitant]
  7. MICROZOLE (HYDROCHLOROTHIAZIDE) [Concomitant]
  8. INDAPAMIDE [Concomitant]
  9. SEROQUEL [Concomitant]

REACTIONS (2)
  - DIABETES MELLITUS [None]
  - PANCREATITIS [None]
